FAERS Safety Report 9908591 (Version 1)
Quarter: 2014Q1

REPORT INFORMATION
  Report Type: Spontaneous
  Country: US (occurrence: None)
  Receive Date: 20140214
  Receipt Date: 20140214
  Transmission Date: 20141002
  Serious: Yes (Hospitalization)
  Sender: FDA-Public Use
  Company Number: None

PATIENT
  Age: 78 Year
  Sex: Female
  Weight: 102.27 kg

DRUGS (12)
  1. PRANDIN [Suspect]
     Indication: DIABETES MELLITUS
     Dosage: CHRONIC
     Route: 048
  2. CRESTOR [Concomitant]
  3. AMITRIPTYLINE [Concomitant]
  4. COUMADIN [Concomitant]
  5. PLAVIX [Concomitant]
  6. TENORMIN [Concomitant]
  7. MEGACE [Concomitant]
  8. MAG OX [Concomitant]
  9. PRINIVIL [Concomitant]
  10. NORVASC [Concomitant]
  11. VOLTAREN [Concomitant]
  12. ASA [Concomitant]

REACTIONS (2)
  - Hypoglycaemia [None]
  - Mental status changes [None]
